FAERS Safety Report 23528982 (Version 1)
Quarter: 2024Q1

REPORT INFORMATION
  Report Type: Spontaneous
  Country: PL (occurrence: PL)
  Receive Date: 20240215
  Receipt Date: 20240215
  Transmission Date: 20240410
  Serious: Yes (Death, Life-Threatening)
  Sender: FDA-Public Use
  Company Number: None

PATIENT
  Age: 70 Year
  Sex: Male
  Weight: 66 kg

DRUGS (6)
  1. RINVOQ [Suspect]
     Active Substance: UPADACITINIB
     Indication: Rheumatoid arthritis
     Dosage: BEGINNING OF THERAPY: 2023 (ONLY ONE YEAR WAS GIVEN)??FORM STRENGTH: 15 MG
     Route: 048
     Dates: start: 2023
  2. BISOPROLOL FUMARATE [Concomitant]
     Active Substance: BISOPROLOL FUMARATE
     Indication: Product used for unknown indication
     Route: 048
  3. FOLIC ACID [Concomitant]
     Active Substance: FOLIC ACID
     Indication: Product used for unknown indication
     Route: 048
  4. METHOTREXATE SODIUM [Concomitant]
     Active Substance: METHOTREXATE SODIUM
     Indication: Product used for unknown indication
     Route: 058
  5. ACARD [Concomitant]
     Indication: Product used for unknown indication
     Route: 048
  6. ZOLPIDEM TARTRATE [Concomitant]
     Active Substance: ZOLPIDEM TARTRATE
     Indication: Product used for unknown indication
     Route: 048

REACTIONS (15)
  - Decreased appetite [Fatal]
  - Pyrexia [Fatal]
  - Pneumocystis test positive [Fatal]
  - Pneumocystis jirovecii pneumonia [Fatal]
  - Weight decreased [Fatal]
  - Pancreatic disorder [Fatal]
  - Dyspnoea at rest [Fatal]
  - Cough [Fatal]
  - Myalgia [Fatal]
  - Abdominal pain [Fatal]
  - Acute respiratory failure [Fatal]
  - Asthenia [Fatal]
  - Cardiac arrest [Fatal]
  - Acute abdomen [Fatal]
  - Oxygen saturation decreased [Fatal]

NARRATIVE: CASE EVENT DATE: 20230725
